FAERS Safety Report 8612879-8 (Version None)
Quarter: 2012Q3

REPORT INFORMATION
  Report Type: 
  Country: None (occurrence: None)
  Receive Date: 20120822
  Receipt Date: 20110829
  Transmission Date: 20120928
  Serious: No
  Sender: FDA-Public Use
  Company Number: US-ASTRAZENECA-2011SE46538

PATIENT
  Age: 74 Year
  Sex: Female

DRUGS (3)
  1. ZESTRIL [Suspect]
     Route: 048
  2. FLUTICASONE PROPIONATE/SALMETEROL [Concomitant]
  3. SYMBICORT [Suspect]
     Route: 055

REACTIONS (3)
  - NIGHTMARE [None]
  - DYSPHONIA [None]
  - DRUG INEFFECTIVE [None]
